FAERS Safety Report 7741695-4 (Version None)
Quarter: 2011Q3

REPORT INFORMATION
  Report Type: 
  Country: None (occurrence: None)
  Receive Date: 20110912
  Receipt Date: 20110830
  Transmission Date: 20111222
  Serious: Yes (Hospitalization)
  Sender: FDA-Public Use
  Company Number: FR-BIOGENIDEC-2011BI021051

PATIENT
  Age: 41 Year
  Sex: Female

DRUGS (6)
  1. HYALURONIC ACID [Concomitant]
     Indication: MOUTH ULCERATION
     Route: 048
     Dates: start: 20101009
  2. TYSABRI [Suspect]
     Indication: MULTIPLE SCLEROSIS
     Route: 042
     Dates: start: 20070723
  3. TROSPIUM CHLORIDE [Concomitant]
     Indication: HYPERTONIC BLADDER
     Route: 048
     Dates: start: 20100101
  4. METHOCARBAMOL [Concomitant]
     Indication: MUSCLE RELAXANT THERAPY
     Route: 048
     Dates: start: 20091109
  5. VALACYCLOVIR [Concomitant]
     Indication: ANTIVIRAL TREATMENT
     Route: 048
     Dates: start: 20101009
  6. ALFUZOSINE [Concomitant]
     Indication: HYPERTONIC BLADDER
     Route: 048
     Dates: start: 20080818

REACTIONS (1)
  - CHOLELITHIASIS [None]
